FAERS Safety Report 16428344 (Version 1)
Quarter: 2019Q2

REPORT INFORMATION
  Report Type: Spontaneous
  Country: US (occurrence: US)
  Receive Date: 20190506
  Receipt Date: 20190506
  Transmission Date: 20190711
  Serious: No
  Sender: FDA-Public Use
  Company Number: None

PATIENT
  Age: 58 Year
  Sex: Male
  Weight: 99.34 kg

DRUGS (1)
  1. ERYTHROMYCIN. [Suspect]
     Active Substance: ERYTHROMYCIN
     Route: 047
     Dates: start: 20180703, end: 20180705

REACTIONS (5)
  - Eye swelling [None]
  - Ocular hyperaemia [None]
  - Vision blurred [None]
  - Eyelid oedema [None]
  - Photophobia [None]

NARRATIVE: CASE EVENT DATE: 20180704
